FAERS Safety Report 10242084 (Version 1)
Quarter: 2014Q2

REPORT INFORMATION
  Report Type: Spontaneous
  Country: US (occurrence: US)
  Receive Date: 20140617
  Receipt Date: 20140617
  Transmission Date: 20141212
  Serious: Yes (Other)
  Sender: FDA-Public Use
  Company Number: US-PFIZER INC-2014165803

PATIENT
  Age: 64 Year
  Sex: Male
  Weight: 70.3 kg

DRUGS (3)
  1. LYRICA [Suspect]
     Indication: NEURALGIA
     Dosage: 75 MG, 2X/DAY
     Route: 048
     Dates: start: 20140601, end: 20140612
  2. OXYCODONE [Concomitant]
     Indication: PAIN
     Dosage: 5 MG, 3X/DAY
  3. IBUPROFEN [Concomitant]
     Indication: PAIN
     Dosage: 800 MG, 2X/DAY

REACTIONS (1)
  - Hypertension [Not Recovered/Not Resolved]
